FAERS Safety Report 25552999 (Version 1)
Quarter: 2025Q3

REPORT INFORMATION
  Report Type: Spontaneous
  Country: BN (occurrence: BN)
  Receive Date: 20250715
  Receipt Date: 20250715
  Transmission Date: 20251020
  Serious: Yes (Hospitalization, Other)
  Sender: Norvium Bioscience
  Company Number: BN-Norvium Bioscience LLC-080397

PATIENT
  Age: 56 Year
  Sex: Female
  Weight: 0 kg

DRUGS (3)
  1. FUROSEMIDE [Interacting]
     Active Substance: FUROSEMIDE
     Indication: Product used for unknown indication
     Dates: start: 202412
  2. OMEPRAZOLE [Interacting]
     Active Substance: OMEPRAZOLE
     Indication: Product used for unknown indication
     Dates: start: 202412
  3. ROSUVASTATIN [Interacting]
     Active Substance: ROSUVASTATIN
     Indication: Product used for unknown indication
     Dates: start: 202412

REACTIONS (3)
  - Rhabdomyolysis [Recovered/Resolved]
  - Dermatomyositis [Recovered/Resolved]
  - Drug interaction [Unknown]

NARRATIVE: CASE EVENT DATE: 20250201
